FAERS Safety Report 9547111 (Version 2)
Quarter: 2013Q4

REPORT INFORMATION
  Report Type: Report from Study
  Country: US (occurrence: US)
  Receive Date: 20130924
  Receipt Date: 20131101
  Transmission Date: 20140711
  Serious: Yes (Hospitalization, Disabling)
  Sender: FDA-Public Use
  Company Number: PHEH2013US019815

PATIENT
  Age: 33 Year
  Sex: Female

DRUGS (6)
  1. GILENYA [Suspect]
     Indication: MULTIPLE SCLEROSIS
     Dosage: 0.5 MG, QD
     Route: 048
     Dates: start: 20121211, end: 20130918
  2. LEVOTHYROXINE [Concomitant]
     Indication: HYPOTHYROIDISM
     Dosage: 100 UG, UNK
     Route: 048
  3. LOESTRIN-FE [Concomitant]
     Indication: CONTRACEPTION
     Route: 048
  4. VITAMIN D3 [Concomitant]
     Indication: SUPPLEMENTATION THERAPY
     Dosage: 2000 U, UNK
     Route: 048
  5. FOLIC ACID GENERIC [Concomitant]
     Indication: SUPPLEMENTATION THERAPY
     Dosage: 1 MG, UNK
  6. MULTI-VIT [Concomitant]
     Indication: SUPPLEMENTATION THERAPY

REACTIONS (11)
  - Simple partial seizures [Recovering/Resolving]
  - Posture abnormal [Recovering/Resolving]
  - Muscle twitching [Recovered/Resolved]
  - Confusional state [Recovering/Resolving]
  - Amnesia [Recovering/Resolving]
  - Grand mal convulsion [Recovering/Resolving]
  - Muscle rigidity [Recovering/Resolving]
  - Loss of consciousness [Recovering/Resolving]
  - Lethargy [Recovering/Resolving]
  - Dyskinesia [Recovering/Resolving]
  - Muscle spasms [Recovering/Resolving]
